FAERS Safety Report 22016692 (Version 2)
Quarter: 2024Q3

REPORT INFORMATION
  Report Type: Spontaneous
  Country: US (occurrence: US)
  Receive Date: 20230221
  Receipt Date: 20240826
  Transmission Date: 20241017
  Serious: No
  Sender: SUNOVION
  Company Number: US-SUNOVION-2023SUN000264AA

PATIENT

DRUGS (2)
  1. LATUDA [Suspect]
     Active Substance: LURASIDONE HYDROCHLORIDE
     Indication: Bipolar disorder
     Dosage: 40 MG, QD (WITH DINNER)
     Route: 048
  2. LURASIDONE HYDROCHLORIDE [Suspect]
     Active Substance: LURASIDONE HYDROCHLORIDE
     Dosage: UNK
     Route: 048

REACTIONS (8)
  - Decreased activity [Not Recovered/Not Resolved]
  - Abdominal distension [Not Recovered/Not Resolved]
  - Feeling abnormal [Unknown]
  - Apraxia [Unknown]
  - Thinking abnormal [Unknown]
  - Hypersomnia [Not Recovered/Not Resolved]
  - Anxiety [Unknown]
  - Insomnia [Unknown]

NARRATIVE: CASE EVENT DATE: 20230101
